APPROVED DRUG PRODUCT: PREDNISOLONE SODIUM PHOSPHATE
Active Ingredient: PREDNISOLONE SODIUM PHOSPHATE
Strength: EQ 0.11% PHOSPHATE
Dosage Form/Route: SOLUTION/DROPS;OPHTHALMIC
Application: A083358 | Product #001
Applicant: EPIC PHARMA LLC
Approved: Approved Prior to Jan 1, 1982 | RLD: No | RS: No | Type: DISCN